FAERS Safety Report 7392289-4 (Version None)
Quarter: 2011Q2

REPORT INFORMATION
  Report Type: 
  Country: None (occurrence: None)
  Receive Date: 20110404
  Receipt Date: 20110321
  Transmission Date: 20111010
  Serious: Yes (Disabling)
  Sender: FDA-Public Use
  Company Number: GB-WATSON-2011-04318

PATIENT
  Age: 57 Year
  Sex: Female
  Weight: 74 kg

DRUGS (25)
  1. PACLITAXEL [Suspect]
     Dosage: 148 MG, UNK
     Route: 042
     Dates: start: 20110119, end: 20110119
  2. SODIUM CHLORIDE [Suspect]
     Dosage: 250 ML, UNK
     Route: 042
     Dates: start: 20110209, end: 20110209
  3. SODIUM CHLORIDE [Suspect]
     Dosage: 250 ML, UNK
     Route: 042
     Dates: start: 20110202, end: 20110202
  4. SODIUM CHLORIDE [Suspect]
     Dosage: 250 ML, UNK
     Route: 042
     Dates: start: 20110126, end: 20110126
  5. PACLITAXEL [Suspect]
     Dosage: 148 MG, UNK
     Route: 042
     Dates: start: 20110202, end: 20110202
  6. PACLITAXEL [Suspect]
     Dosage: 148 MG, UNK
     Route: 042
     Dates: start: 20101229, end: 20101229
  7. SODIUM CHLORIDE [Suspect]
     Dosage: 250 ML, UNK
     Route: 042
     Dates: start: 20110222, end: 20110222
  8. SODIUM CHLORIDE [Suspect]
     Dosage: 250 ML, UNK
     Route: 042
     Dates: start: 20110105, end: 20110105
  9. SODIUM CHLORIDE [Suspect]
     Dosage: 100 ML, UNK
     Route: 042
     Dates: start: 20101229
  10. RANITIDINE HYDROCHLORIDE [Suspect]
     Indication: PRODUCT USED FOR UNKNOWN INDICATION
     Dosage: 50 MG, UNK
     Route: 042
     Dates: start: 20101229
  11. ALOXI [Suspect]
     Indication: PRODUCT USED FOR UNKNOWN INDICATION
     Dosage: 250 MG, UNK
     Route: 042
     Dates: start: 20101229
  12. CHLORPHENAMINE [Suspect]
     Indication: PRODUCT USED FOR UNKNOWN INDICATION
     Dosage: 10 MG, UNK
     Route: 042
     Dates: start: 20101229
  13. PACLITAXEL [Suspect]
     Dosage: 148 MG, UNK
     Route: 042
     Dates: start: 20110105, end: 20110105
  14. PACLITAXEL [Suspect]
     Indication: BREAST CANCER
     Dosage: 148 MG, UNK
     Route: 042
     Dates: start: 20110222, end: 20110222
  15. PACLITAXEL [Suspect]
     Dosage: 148 MG, UNK
     Route: 042
     Dates: start: 20110112, end: 20110112
  16. PACLITAXEL [Suspect]
     Dosage: 120 MG, UNK
     Route: 042
     Dates: start: 20110216, end: 20110216
  17. PACLITAXEL [Suspect]
     Dosage: 148 MG, UNK
     Route: 042
     Dates: start: 20110209, end: 20110209
  18. PACLITAXEL [Suspect]
     Dosage: 148 MG, UNK
     Route: 042
     Dates: start: 20110126, end: 20110126
  19. DEXAMETHASONE [Suspect]
     Indication: PRODUCT USED FOR UNKNOWN INDICATION
     Dosage: 8 MG, UNK
     Route: 042
     Dates: start: 20101229
  20. PACLITAXEL [Suspect]
     Dosage: UNK
     Route: 042
     Dates: start: 20110201
  21. SODIUM CHLORIDE [Suspect]
     Indication: BREAST CANCER
     Dosage: 100 ML, UNK
     Route: 042
  22. SODIUM CHLORIDE [Suspect]
     Dosage: 250 ML, UNK
     Route: 042
     Dates: start: 20110119, end: 20110119
  23. SODIUM CHLORIDE [Suspect]
     Dosage: 250 ML, UNK
     Route: 042
     Dates: start: 20110216, end: 20110216
  24. SODIUM CHLORIDE [Suspect]
     Dosage: 250 ML, UNK
     Route: 042
     Dates: start: 20101229, end: 20101229
  25. SODIUM CHLORIDE [Suspect]
     Dosage: 250 ML, UNK
     Route: 042
     Dates: start: 20110112, end: 20110112

REACTIONS (1)
  - NEUROPATHY PERIPHERAL [None]
